FAERS Safety Report 21711556 (Version 1)
Quarter: 2022Q4

REPORT INFORMATION
  Report Type: Spontaneous
  Country: US (occurrence: US)
  Receive Date: 20221212
  Receipt Date: 20221212
  Transmission Date: 20230113
  Serious: No
  Sender: FDA-Public Use
  Company Number: US-SUN PHARMACEUTICAL INDUSTRIES LTD-2022R1-357265

PATIENT
  Sex: Male

DRUGS (1)
  1. LOTEPREDNOL [Suspect]
     Active Substance: LOTEPREDNOL
     Indication: Product used for unknown indication
     Route: 047

REACTIONS (1)
  - Vision blurred [Unknown]
